FAERS Safety Report 6698277-5 (Version None)
Quarter: 2010Q2

REPORT INFORMATION
  Report Type: 
  Country: None (occurrence: None)
  Receive Date: 20100427
  Receipt Date: 20100419
  Transmission Date: 20101027
  Serious: Yes (Other)
  Sender: FDA-Public Use
  Company Number: US-BAYER-201011453BCC

PATIENT
  Age: 72 Year
  Sex: Female
  Weight: 80 kg

DRUGS (4)
  1. ASPIRIN [Suspect]
     Indication: BACK PAIN
     Dosage: TOTAL DAILY DOSE: 325 MG  UNIT DOSE: 325 MG
     Route: 048
     Dates: start: 20100108, end: 20100110
  2. ASPIRIN [Suspect]
     Dosage: UNIT DOSE: 325 MG
     Route: 048
     Dates: start: 20100111, end: 20100119
  3. UNKNOWN NARCOTIC [Concomitant]
     Indication: BACK PAIN
     Dosage: UNIT DOSE: 1 DF
     Route: 065
     Dates: start: 20100103
  4. UNKNOWN NARCOTIC WITH CODEINE [Concomitant]
     Indication: BACK PAIN
     Route: 065
     Dates: start: 20100108, end: 20100110

REACTIONS (6)
  - ABDOMINAL DISCOMFORT [None]
  - DIARRHOEA [None]
  - ERUCTATION [None]
  - FLATULENCE [None]
  - GASTRIC HAEMORRHAGE [None]
  - GASTRITIS [None]
